FAERS Safety Report 10208600 (Version 1)
Quarter: 2014Q2

REPORT INFORMATION
  Report Type: Spontaneous
  Country: JP (occurrence: JP)
  Receive Date: 20140530
  Receipt Date: 20140530
  Transmission Date: 20141212
  Serious: Yes (Other)
  Sender: FDA-Public Use
  Company Number: PHHY2014JP066212

PATIENT
  Age: 57 Year
  Sex: Female

DRUGS (9)
  1. CICLOSPORIN [Suspect]
     Indication: HISTIOCYTOSIS HAEMATOPHAGIC
     Route: 048
  2. TACROLIMUS [Suspect]
     Indication: HISTIOCYTOSIS HAEMATOPHAGIC
  3. DEXAMETHASONE [Suspect]
     Indication: HISTIOCYTOSIS HAEMATOPHAGIC
  4. ETOPOSIDE [Concomitant]
     Indication: HISTIOCYTOSIS HAEMATOPHAGIC
     Route: 042
  5. METHYLPREDNISOLONE [Concomitant]
     Indication: HISTIOCYTOSIS HAEMATOPHAGIC
  6. PREDNISOLONE [Concomitant]
     Indication: HISTIOCYTOSIS HAEMATOPHAGIC
  7. IMMUNOGLOBULINS NOS [Concomitant]
     Route: 042
  8. STEROIDS [Concomitant]
  9. PLASMA EXCHANGE [Concomitant]

REACTIONS (9)
  - Dermatomyositis [Unknown]
  - Rash [Unknown]
  - Erythema [Unknown]
  - Collagen disorder [Unknown]
  - Cardiomyopathy [Unknown]
  - Drug resistance [Unknown]
  - Histiocytosis haematophagic [Recovering/Resolving]
  - Pancytopenia [Unknown]
  - Drug ineffective [Unknown]
